FAERS Safety Report 17608746 (Version 1)
Quarter: 2020Q2

REPORT INFORMATION
  Report Type: Spontaneous
  Country: US (occurrence: US)
  Receive Date: 20200401
  Receipt Date: 20200401
  Transmission Date: 20200713
  Serious: Yes (Other)
  Sender: FDA-Public Use
  Company Number: US-ADVANZ PHARMA-202003001933

PATIENT

DRUGS (4)
  1. PREDNISONE. [Suspect]
     Active Substance: PREDNISONE
     Dosage: 10 MG, QD
     Route: 065
  2. CELLCEPT [Suspect]
     Active Substance: MYCOPHENOLATE MOFETIL\MYCOPHENOLATE MOFETIL HYDROCHLORIDE
     Dosage: 1000 MG, BID
     Route: 065
  3. HYDROXYCHLOROQUINE [Suspect]
     Active Substance: HYDROXYCHLOROQUINE
     Dosage: 200 MG, QD, TABLET
     Route: 065
  4. VALACYCLOVIR [Concomitant]
     Active Substance: VALACYCLOVIR HYDROCHLORIDE

REACTIONS (15)
  - Varicella zoster virus infection [Unknown]
  - Ocular hyperaemia [Unknown]
  - Blindness [Unknown]
  - Eye pain [Recovered/Resolved with Sequelae]
  - Intraocular pressure increased [Unknown]
  - Scleral disorder [Unknown]
  - Necrotising retinitis [Unknown]
  - Retinal detachment [Recovered/Resolved with Sequelae]
  - Vitritis [Unknown]
  - Epstein-Barr virus infection [Unknown]
  - Anterior chamber disorder [Recovered/Resolved with Sequelae]
  - Vision blurred [Unknown]
  - Uveitis [Unknown]
  - Vitreous floaters [Unknown]
  - Eye pain [Unknown]
